FAERS Safety Report 4993784-5 (Version None)
Quarter: 2006Q2

REPORT INFORMATION
  Report Type: 
  Country: None (occurrence: None)
  Receive Date: 20060505
  Receipt Date: 20050627
  Transmission Date: 20061013
  Serious: Yes (Hospitalization)
  Sender: FDA-Public Use
  Company Number: US-MERCK-0506USA03772

PATIENT
  Age: 54 Year
  Sex: Male
  Weight: 130 kg

DRUGS (3)
  1. VIOXX [Suspect]
     Indication: MYALGIA
     Route: 048
     Dates: start: 20000210, end: 20041101
  2. VIOXX [Suspect]
     Indication: CARPAL TUNNEL SYNDROME
     Route: 048
     Dates: start: 20000210, end: 20041101
  3. PREVACID [Concomitant]
     Route: 065

REACTIONS (12)
  - CARPAL TUNNEL SYNDROME [None]
  - CHEST PAIN [None]
  - CORONARY ARTERY DISEASE [None]
  - DEEP VEIN THROMBOSIS [None]
  - DEPRESSION [None]
  - DRUG INEFFECTIVE [None]
  - DYSLIPIDAEMIA [None]
  - DYSPEPSIA [None]
  - ERECTILE DYSFUNCTION [None]
  - HYPERTENSION [None]
  - PHLEBITIS SUPERFICIAL [None]
  - RHEUMATOID ARTHRITIS [None]
